FAERS Safety Report 5685380-1 (Version None)
Quarter: 2008Q1

REPORT INFORMATION
  Report Type: 
  Country: None (occurrence: None)
  Receive Date: 20080328
  Receipt Date: 20080318
  Transmission Date: 20080703
  Serious: Yes (Other)
  Sender: FDA-Public Use
  Company Number: IT-PFIZER INC-2008025651

PATIENT
  Age: 62 Year
  Sex: Female

DRUGS (2)
  1. AROMASIN [Suspect]
     Indication: BREAST CANCER
     Route: 048
  2. BIPHOSPHONATE [Concomitant]
     Route: 048

REACTIONS (1)
  - MACULOPATHY [None]
